FAERS Safety Report 20638743 (Version 1)
Quarter: 2022Q1

REPORT INFORMATION
  Report Type: Spontaneous
  Country: DK (occurrence: DK)
  Receive Date: 20220325
  Receipt Date: 20220325
  Transmission Date: 20220423
  Serious: Yes (Other)
  Sender: FDA-Public Use
  Company Number: None

PATIENT
  Age: 46 Year
  Sex: Male
  Weight: 98.2 kg

DRUGS (7)
  1. MONTELUKAST SODIUM [Suspect]
     Active Substance: MONTELUKAST SODIUM
     Indication: Asthma prophylaxis
     Dosage: STRENGTH: 10 MG , UNIT DOSE : 10 MG
     Route: 048
     Dates: start: 20210727
  2. FEXOFENADINE [Concomitant]
     Active Substance: FEXOFENADINE HYDROCHLORIDE
     Indication: Seasonal allergy
     Dosage: STRENGTH: 180 MG , UNIT DOSE : 180 MG
     Route: 048
     Dates: start: 20140804
  3. FLUOCORTOLONE PIVALATE\LIDOCAINE HYDROCHLORIDE [Concomitant]
     Active Substance: FLUOCORTOLONE PIVALATE\LIDOCAINE HYDROCHLORIDE
     Indication: Haemorrhoids
     Dosage: 2 DF
     Route: 054
     Dates: start: 20190523
  4. FLUTICASONE FUROATE [Concomitant]
     Active Substance: FLUTICASONE FUROATE
     Indication: Rhinitis allergic
     Dosage: STRENGTH: 27.5 MCG?DOSAGE: 55 MCG IN BOTH NOSTRILS
     Route: 045
     Dates: start: 20170807
  5. SYMBICORT [Concomitant]
     Active Substance: BUDESONIDE\FORMOTEROL FUMARATE DIHYDRATE
     Indication: Asthma
     Dosage: STRENGTH: 4.5+160 MCG/DOSE , UNIT DOSE : 2 DF
     Route: 055
     Dates: start: 20130115
  6. BRICANYL [Concomitant]
     Active Substance: TERBUTALINE SULFATE
     Indication: Asthma
     Dosage: STRENGTH: 0.5 MG/DOSE , UNIT DOSE : 0.5 MG
     Route: 055
     Dates: start: 20150216
  7. DAIVOBET [Concomitant]
     Active Substance: BETAMETHASONE DIPROPIONATE\CALCIPOTRIENE
     Indication: Psoriasis
     Dosage: STRENGTH: 50+500 MICROGRAMS/G. DOSAGE: AS INSTRUCTED
     Route: 003
     Dates: start: 20180426

REACTIONS (2)
  - Dysuria [Not Recovered/Not Resolved]
  - Erectile dysfunction [Not Recovered/Not Resolved]

NARRATIVE: CASE EVENT DATE: 20211019
